FAERS Safety Report 7744099-3 (Version None)
Quarter: 2011Q3

REPORT INFORMATION
  Report Type: 
  Country: None (occurrence: None)
  Receive Date: 20110912
  Receipt Date: 20110905
  Transmission Date: 20111222
  Serious: No
  Sender: FDA-Public Use
  Company Number: ID-ASTRAZENECA-2011SE53667

PATIENT

DRUGS (1)
  1. CRESTOR [Suspect]
     Indication: HYPERCHOLESTEROLAEMIA
     Route: 048

REACTIONS (1)
  - INSOMNIA [None]
